FAERS Safety Report 23400204 (Version 2)
Quarter: 2024Q1

REPORT INFORMATION
  Report Type: Report from Study
  Country: CO (occurrence: None)
  Receive Date: 20240114
  Receipt Date: 20240117
  Transmission Date: 20240409
  Serious: Yes (Death, Hospitalization, Other)
  Sender: FDA-Public Use
  Company Number: 2024A009304

PATIENT
  Age: 27440 Day
  Sex: Male

DRUGS (1)
  1. LYNPARZA [Suspect]
     Active Substance: OLAPARIB
     Indication: Prostate cancer
     Route: 048
     Dates: start: 20231123

REACTIONS (1)
  - Respiratory distress [Fatal]

NARRATIVE: CASE EVENT DATE: 20240106
